FAERS Safety Report 7873917-3 (Version None)
Quarter: 2011Q4

REPORT INFORMATION
  Report Type: 
  Country: None (occurrence: None)
  Receive Date: 20111030
  Receipt Date: 20110512
  Transmission Date: 20120403
  Serious: Yes (Other)
  Sender: FDA-Public Use
  Company Number: US-AMGEN-USASP2011025062

PATIENT
  Age: 55 Year
  Sex: Female

DRUGS (2)
  1. ENBREL [Suspect]
     Indication: RHEUMATOID ARTHRITIS
     Dosage: 50 MG, QWK
     Dates: start: 20100101, end: 20110401
  2. ENBREL [Suspect]
     Dosage: 50 MG, QWK
     Dates: start: 20100101, end: 20110401

REACTIONS (1)
  - LUPUS-LIKE SYNDROME [None]
